FAERS Safety Report 20361719 (Version 2)
Quarter: 2022Q1

REPORT INFORMATION
  Report Type: Spontaneous
  Country: JP (occurrence: JP)
  Receive Date: 20220121
  Receipt Date: 20220211
  Transmission Date: 20220423
  Serious: Yes (Disabling, Other)
  Sender: FDA-Public Use
  Company Number: JP-OTSUKA-2021_037734

PATIENT
  Age: 58 Year
  Sex: Male

DRUGS (3)
  1. SAMSCA [Suspect]
     Active Substance: TOLVAPTAN
     Indication: Cardiac failure acute
     Dosage: 7.5 MG, QD
     Route: 048
     Dates: start: 20211024, end: 20211025
  2. SAMSCA [Suspect]
     Active Substance: TOLVAPTAN
     Indication: Atrial fibrillation
  3. FUROSEMIDE [Suspect]
     Active Substance: FUROSEMIDE
     Indication: Product used for unknown indication
     Dosage: 20 MG, QD
     Route: 042
     Dates: start: 20211022, end: 20211025

REACTIONS (6)
  - Altered state of consciousness [Unknown]
  - Cardiogenic shock [Unknown]
  - Cerebral infarction [Unknown]
  - Osmotic demyelination syndrome [Recovered/Resolved with Sequelae]
  - Hypernatraemia [Recovered/Resolved with Sequelae]
  - Product use in unapproved indication [Unknown]

NARRATIVE: CASE EVENT DATE: 20211025
